FAERS Safety Report 20513174 (Version 3)
Quarter: 2024Q1

REPORT INFORMATION
  Report Type: Spontaneous
  Country: US (occurrence: US)
  Receive Date: 20220224
  Receipt Date: 20240226
  Transmission Date: 20240409
  Serious: Yes (Hospitalization)
  Sender: FDA-Public Use
  Company Number: US-AMNEAL PHARMACEUTICALS-2021-AMRX-00976

PATIENT
  Sex: Female

DRUGS (20)
  1. RYTARY [Suspect]
     Active Substance: CARBIDOPA\LEVODOPA
     Indication: Product used for unknown indication
     Dosage: 36.25/145MG, 2 CAPSULES, 4 /DAY AT 8AM, 12PM, 4PM, 8PM
     Route: 048
     Dates: start: 2021
  2. RYTARY [Suspect]
     Active Substance: CARBIDOPA\LEVODOPA
     Dosage: 36.25/145MG, 1 CAPSULES, 4 /DAY
     Route: 048
  3. RYTARY [Suspect]
     Active Substance: CARBIDOPA\LEVODOPA
     Dosage: 48.75/195MG, 1 CAPSULES, 4 /DAY
     Route: 048
     Dates: end: 20210121
  4. RYTARY [Suspect]
     Active Substance: CARBIDOPA\LEVODOPA
     Dosage: 1 CAPSULES (23.75-95 MG), 2 /DAY
     Route: 048
  5. RYTARY [Suspect]
     Active Substance: CARBIDOPA\LEVODOPA
     Dosage: 95MG CAP TWICE DAILY WITH 145MG CAPS 6 TIMES DAILY
     Route: 048
  6. RYTARY [Suspect]
     Active Substance: CARBIDOPA\LEVODOPA
     Dosage: 23.75-95 MG (1 CAP BID)  AND 36.25-145MG (2 CAP QID)
     Route: 048
  7. RYTARY [Suspect]
     Active Substance: CARBIDOPA\LEVODOPA
     Dosage: 36.25-145MG (2 CAP AT 8 AM, 1 CAP 12 PM, 2 CAP 4 PM, 1 CAP AT 8PM))
     Route: 048
     Dates: start: 20230615
  8. RYTARY [Suspect]
     Active Substance: CARBIDOPA\LEVODOPA
     Dosage: 36.25-145MG (1CAP THREE TIMES DAILY AT 9 AM, 1 PM, 6PM)
     Route: 048
     Dates: start: 20231011
  9. VITAMIN B6 [Suspect]
     Active Substance: PYRIDOXINE HYDROCHLORIDE
     Indication: Vitamin supplementation
     Dosage: 100 MILLIGRAM, DAILY
     Route: 065
  10. VITAMIN B6 [Suspect]
     Active Substance: PYRIDOXINE HYDROCHLORIDE
     Dosage: 100 MILLIGRAM, 3X/WEEK
     Route: 065
     Dates: start: 2021, end: 202103
  11. MELATONIN [Concomitant]
     Active Substance: MELATONIN
     Indication: Product used for unknown indication
     Dosage: 10MG-15MG, BEDTIME
     Route: 065
  12. MIRALAX [Concomitant]
     Active Substance: POLYETHYLENE GLYCOL 3350
     Indication: Product used for unknown indication
     Dosage: PRN (AS NEEDED)
     Route: 065
  13. LOSARTAN [Concomitant]
     Active Substance: LOSARTAN
     Indication: Product used for unknown indication
     Dosage: 25 MILLIGRAM, DAILY IN EVENING
     Route: 065
  14. GABAPENTIN [Concomitant]
     Active Substance: GABAPENTIN
     Indication: Product used for unknown indication
     Dosage: 1 CAPSULE IN MORNING AND 2 AT BEDTIME
     Route: 065
  15. SIMVASTATIN [Concomitant]
     Active Substance: SIMVASTATIN
     Indication: Product used for unknown indication
     Dosage: 1 TABLETS, 3X/WEEK IN EVENING
     Route: 065
  16. DULOXETINE [Concomitant]
     Active Substance: DULOXETINE
     Indication: Product used for unknown indication
     Dosage: 1 CAPSULES, 2 /DAY AT AM AND PM
     Route: 065
  17. VITAMIN D3 [Concomitant]
     Active Substance: CHOLECALCIFEROL
     Indication: Product used for unknown indication
     Dosage: 100 MILLIGRAM, DAILY
     Route: 065
  18. METRO [METRONIDAZOLE] [Concomitant]
     Indication: Product used for unknown indication
     Dosage: UNK UNK, BEDTIME
     Route: 065
  19. ACETAMINOPHEN\HYDROCODONE [Concomitant]
     Active Substance: ACETAMINOPHEN\HYDROCODONE
     Indication: Pain
     Dosage: 7.5/235MG, 3X/DAY, PRN
     Route: 065
  20. BACLOFEN [Concomitant]
     Active Substance: BACLOFEN
     Indication: Muscle spasms
     Dosage: 0.5 TABLETS, 3 /DAY, PRN
     Route: 065

REACTIONS (4)
  - Constipation [Recovered/Resolved]
  - Vitamin B6 increased [Unknown]
  - Pain [Unknown]
  - Dehydration [Unknown]

NARRATIVE: CASE EVENT DATE: 20210101
